FAERS Safety Report 7067425-X (Version None)
Quarter: 2010Q4

REPORT INFORMATION
  Report Type: 
  Country: None (occurrence: None)
  Receive Date: 20101028
  Receipt Date: 20101018
  Transmission Date: 20110411
  Serious: Yes (Other)
  Sender: FDA-Public Use
  Company Number: JP-JNJFOC-20100807358

PATIENT
  Age: 76 Year
  Sex: Female

DRUGS (11)
  1. RISPERDAL [Suspect]
     Indication: PRODUCT USED FOR UNKNOWN INDICATION
     Route: 048
  2. ARICEPT [Suspect]
     Indication: PRODUCT USED FOR UNKNOWN INDICATION
     Route: 048
  3. ARICEPT [Suspect]
     Route: 048
  4. MAGMITT [Concomitant]
     Route: 048
  5. CONIEL [Concomitant]
     Route: 048
  6. DIOVAN [Concomitant]
     Route: 048
  7. ZOLOFT [Concomitant]
     Route: 048
  8. LIPITOR [Concomitant]
     Route: 048
  9. FLUITRAN [Concomitant]
     Route: 048
  10. SENNOSIDE [Concomitant]
     Route: 048
  11. LASIX [Concomitant]
     Indication: PRODUCT USED FOR UNKNOWN INDICATION
     Route: 065

REACTIONS (3)
  - DEMENTIA [None]
  - POSTURE ABNORMAL [None]
  - TREMOR [None]
